FAERS Safety Report 9338142 (Version 2)
Quarter: 2013Q3

REPORT INFORMATION
  Report Type: Spontaneous
  Country: US (occurrence: US)
  Receive Date: 20130610
  Receipt Date: 20130723
  Transmission Date: 20140515
  Serious: No
  Sender: FDA-Public Use
  Company Number: US-009507513-1305USA016911

PATIENT
  Age: 35 Year
  Sex: Female
  Weight: 68.48 kg

DRUGS (2)
  1. IMPLANON [Suspect]
     Indication: CONTRACEPTION
     Dosage: 1 ROD, UNK
     Route: 059
     Dates: start: 20110930
  2. IMPLANON [Suspect]
     Indication: ENDOMETRIOSIS

REACTIONS (7)
  - Haemorrhage [Recovered/Resolved]
  - Haemorrhage [Not Recovered/Not Resolved]
  - Implant site pain [Recovered/Resolved]
  - Breast tenderness [Not Recovered/Not Resolved]
  - Weight decreased [Not Recovered/Not Resolved]
  - Device dislocation [Not Recovered/Not Resolved]
  - Drug eruption [Not Recovered/Not Resolved]
